FAERS Safety Report 9054810 (Version 2)
Quarter: 2013Q1

REPORT INFORMATION
  Report Type: Spontaneous
  Country: TR (occurrence: TR)
  Receive Date: 20130208
  Receipt Date: 20130215
  Transmission Date: 20140127
  Serious: Yes (Other)
  Sender: FDA-Public Use
  Company Number: PHHY2013TR010721

PATIENT
  Age: 73 Year
  Sex: Male

DRUGS (1)
  1. IMATINIB [Suspect]
     Indication: GASTROINTESTINAL STROMAL TUMOUR
     Dosage: 400 MG, PER DAY

REACTIONS (6)
  - Acquired hydrocele [Recovering/Resolving]
  - Blood testosterone decreased [Recovering/Resolving]
  - Blood oestrogen increased [Recovering/Resolving]
  - Gynaecomastia [Recovering/Resolving]
  - Breast pain [Unknown]
  - Oedema peripheral [Unknown]
